FAERS Safety Report 13792576 (Version 7)
Quarter: 2022Q4

REPORT INFORMATION
  Report Type: Report from Study
  Country: ES (occurrence: ES)
  Receive Date: 20170726
  Receipt Date: 20221204
  Transmission Date: 20230113
  Serious: Yes (Death, Hospitalization, Other)
  Sender: FDA-Public Use
  Company Number: ES-BOEHRINGERINGELHEIM-2017-BI-041483

PATIENT
  Age: 81 Year
  Sex: Male
  Weight: 75 kg

DRUGS (1)
  1. PRADAXA [Suspect]
     Active Substance: DABIGATRAN ETEXILATE MESYLATE
     Indication: Atrial fibrillation
     Route: 048
     Dates: start: 20140313

REACTIONS (4)
  - Intraventricular haemorrhage [Fatal]
  - Hydrocephalus [Unknown]
  - Cerebral infarction [Unknown]
  - Lung consolidation [Unknown]

NARRATIVE: CASE EVENT DATE: 20161129
